FAERS Safety Report 14656938 (Version 1)
Quarter: 2018Q1

REPORT INFORMATION
  Report Type: Spontaneous
  Country: US (occurrence: US)
  Receive Date: 20180319
  Receipt Date: 20180319
  Transmission Date: 20180509
  Serious: No
  Sender: FDA-Public Use
  Company Number: US-SA-2017SA172249

PATIENT
  Age: 74 Year
  Sex: Female

DRUGS (1)
  1. NASACORT ALLERGY 24HR [Suspect]
     Active Substance: TRIAMCINOLONE ACETONIDE
     Indication: SEASONAL ALLERGY
     Dosage: 2 SPRAYS PER NOSE EVERY MORNING
     Route: 065
     Dates: start: 2009, end: 2009

REACTIONS (6)
  - Burning sensation [Recovered/Resolved]
  - Dysgeusia [Unknown]
  - Headache [Recovered/Resolved]
  - Head discomfort [Unknown]
  - Rhinorrhoea [Unknown]
  - Sinus disorder [Recovered/Resolved]
